FAERS Safety Report 6422064-6 (Version None)
Quarter: 2009Q4

REPORT INFORMATION
  Report Type: 
  Country: None (occurrence: None)
  Receive Date: 20091030
  Receipt Date: 20091019
  Transmission Date: 20100525
  Serious: Yes (Hospitalization, Other)
  Sender: FDA-Public Use
  Company Number: BE-BRISTOL-MYERS SQUIBB COMPANY-14818884

PATIENT
  Age: 75 Year
  Sex: Male

DRUGS (3)
  1. APIXABAN [Suspect]
     Indication: THROMBOSIS PROPHYLAXIS
     Dosage: INTERRUPTED 06-OCT-2009
     Route: 048
     Dates: start: 20090916
  2. WARFARIN SODIUM [Suspect]
     Indication: THROMBOSIS PROPHYLAXIS
     Dosage: INTERRUPTED 25-SEP-2009
     Route: 048
     Dates: start: 20090916
  3. PLACEBO [Suspect]
     Indication: THROMBOSIS PROPHYLAXIS
     Route: 048
     Dates: start: 20090916

REACTIONS (3)
  - HAEMORRHAGE [None]
  - OVERDOSE [None]
  - PARALYSIS [None]
